FAERS Safety Report 19194173 (Version 2)
Quarter: 2021Q2

REPORT INFORMATION
  Report Type: Spontaneous
  Country: NL (occurrence: NL)
  Receive Date: 20210429
  Receipt Date: 20210507
  Transmission Date: 20210717
  Serious: Yes (Hospitalization)
  Sender: FDA-Public Use
  Company Number: NL-TEVA-2021-NL-1905210

PATIENT
  Age: 70 Year
  Sex: Male
  Weight: 73 kg

DRUGS (5)
  1. CLINDAMYCINE CAPSULE 300MG / BRAND NAME NOT SPECIFIED [Suspect]
     Active Substance: CLINDAMYCIN HYDROCHLORIDE
     Indication: DENTAL PROSTHESIS PLACEMENT
     Dosage: 1200 MILLIGRAM DAILY; THERAPY END DATE: ASKU
     Route: 065
     Dates: start: 202104
  2. ADALIMUMAB INJVLST 100MG/ML / HUMIRA 40 INJVLST 100MG/ML WWSP 0,4ML [Concomitant]
     Dosage: FLUID, 100 MG/ML, THERAPY START AND END DATE: ASKU
  3. CLINDAMYCINE CAPSULE 300MG / BRAND NAME NOT SPECIFIED [Suspect]
     Active Substance: CLINDAMYCIN HYDROCHLORIDE
     Dosage: BEFORE THE PROCEDURE 2 CAPSULES, 600 MG
     Route: 065
     Dates: start: 20210407, end: 20210407
  4. VERAPAMIL [Concomitant]
     Active Substance: VERAPAMIL HYDROCHLORIDE
     Dosage: 120 MG, THERAPY START AND END DATE: ASKU
  5. CANDESARTAN TABLET 16MG / BRAND NAME NOT SPECIFIED [Concomitant]
     Dosage: 16 MG, THERAPY START AND END DATE: ASKU

REACTIONS (5)
  - Rash [Recovering/Resolving]
  - Skin exfoliation [Recovering/Resolving]
  - Erythema [Recovering/Resolving]
  - Pyrexia [Recovering/Resolving]
  - Peripheral swelling [Recovering/Resolving]

NARRATIVE: CASE EVENT DATE: 20210407
